FAERS Safety Report 4301863-0 (Version None)
Quarter: 2004Q1

REPORT INFORMATION
  Report Type: 
  Country: None (occurrence: None)
  Receive Date: 20040223
  Receipt Date: 20030417
  Transmission Date: 20041129
  Serious: Yes (Other)
  Sender: FDA-Public Use
  Company Number: US-BRISTOL-MYERS SQUIBB COMPANY-12502712

PATIENT
  Age: 58 Year
  Sex: Male

DRUGS (4)
  1. STAVUDINE [Suspect]
     Indication: ACQUIRED IMMUNODEFICIENCY SYNDROME
     Dates: start: 19990101
  2. SAQUINAVIR [Suspect]
     Indication: ACQUIRED IMMUNODEFICIENCY SYNDROME
     Dates: start: 19990101
  3. RITONAVIR [Suspect]
     Indication: ACQUIRED IMMUNODEFICIENCY SYNDROME
     Dates: start: 19990101
  4. LAMIVUDINE [Suspect]
     Indication: ACQUIRED IMMUNODEFICIENCY SYNDROME
     Dates: start: 19990101

REACTIONS (5)
  - BLOOD CULTURE POSITIVE [None]
  - CRYPTOCOCCOSIS [None]
  - CSF TEST ABNORMAL [None]
  - GRANULOMA [None]
  - IMMUNE RECONSTITUTION SYNDROME [None]
